FAERS Safety Report 7219873-2 (Version None)
Quarter: 2011Q1

REPORT INFORMATION
  Report Type: 
  Country: None (occurrence: None)
  Receive Date: 20110111
  Receipt Date: 20110104
  Transmission Date: 20110831
  Serious: Yes (Hospitalization)
  Sender: FDA-Public Use
  Company Number: FR-B.I. PHARMACEUTICALS,INC./RIDGEFIELD-2011-FF-00004FF

PATIENT
  Sex: Female

DRUGS (7)
  1. DOLIPRANE [Concomitant]
     Dosage: 4000 MG
  2. IMOVANE [Concomitant]
  3. BEFIZAL [Concomitant]
     Dosage: 200 MG
  4. ACUPAN [Concomitant]
     Dosage: 60 MG
     Route: 042
     Dates: start: 20101216, end: 20101218
  5. PRADAXA [Suspect]
     Indication: THROMBOSIS PROPHYLAXIS
     Dosage: 150 MG
     Route: 048
     Dates: start: 20101216, end: 20101220
  6. NAROPIN [Concomitant]
     Dosage: 2 MG/ML: 4ML/HOUR
     Route: 042
     Dates: start: 20101216, end: 20101218
  7. ENALAPRIL MALEATE [Concomitant]
     Dosage: 20 MG
     Dates: start: 20101216

REACTIONS (2)
  - DRUG INEFFECTIVE [None]
  - DEEP VEIN THROMBOSIS [None]
